FAERS Safety Report 7650634-6 (Version None)
Quarter: 2011Q3

REPORT INFORMATION
  Report Type: 
  Country: None (occurrence: None)
  Receive Date: 20110802
  Receipt Date: 20110721
  Transmission Date: 20111222
  Serious: Yes (Other)
  Sender: FDA-Public Use
  Company Number: CA-JNJFOC-20110711114

PATIENT
  Sex: Female

DRUGS (2)
  1. REMICADE [Suspect]
     Indication: MATERNAL EXPOSURE DURING PREGNANCY
     Route: 064
     Dates: start: 20080101
  2. PRENATAL VITAMINS [Concomitant]
     Route: 064

REACTIONS (2)
  - SMALL FOR DATES BABY [None]
  - PREMATURE BABY [None]
